FAERS Safety Report 17177225 (Version 2)
Quarter: 2020Q1

REPORT INFORMATION
  Report Type: Spontaneous
  Country: US (occurrence: US)
  Receive Date: 20191219
  Receipt Date: 20200116
  Transmission Date: 20200409
  Serious: Yes (Other)
  Sender: FDA-Public Use
  Company Number: US-ASTRAZENECA-2019SF81697

PATIENT
  Age: 27189 Day
  Sex: Female
  Weight: 53.1 kg

DRUGS (1)
  1. PULMICORT FLEXHALER [Suspect]
     Active Substance: BUDESONIDE
     Indication: ASTHMA
     Route: 055
     Dates: start: 20191209

REACTIONS (7)
  - Asthma [Unknown]
  - Cough [Unknown]
  - Insomnia [Unknown]
  - Drug ineffective [Unknown]
  - Thyroid mass [Unknown]
  - Blood cholesterol increased [Unknown]
  - Multiple allergies [Unknown]

NARRATIVE: CASE EVENT DATE: 20191209
